FAERS Safety Report 14535457 (Version 3)
Quarter: 2018Q2

REPORT INFORMATION
  Report Type: Spontaneous
  Country: DE (occurrence: DE)
  Receive Date: 20180215
  Receipt Date: 20180420
  Transmission Date: 20180711
  Serious: Yes (Other)
  Sender: FDA-Public Use
  Company Number: DE-OTSUKA-2018_002875

PATIENT
  Sex: Female
  Weight: 69 kg

DRUGS (8)
  1. RISPERDAL [Interacting]
     Active Substance: RISPERIDONE
     Indication: SCHIZOPHRENIA
     Dosage: 5 MG, QD
     Route: 048
  2. AKINETON [Interacting]
     Active Substance: BIPERIDEN HYDROCHLORIDE
     Indication: PRODUCT USED FOR UNKNOWN INDICATION
     Dosage: UNK
     Route: 065
  3. KEPPRA [Interacting]
     Active Substance: LEVETIRACETAM
     Indication: EPILEPSY
     Dosage: UNK
     Route: 065
     Dates: start: 201711
  4. KEPPRA [Interacting]
     Active Substance: LEVETIRACETAM
     Dosage: 4000 MG, QD
     Route: 065
     Dates: start: 201712
  5. ABILIFY [Suspect]
     Active Substance: ARIPIPRAZOLE
     Indication: SCHIZOPHRENIA
     Dosage: 10 MG, QD
     Route: 048
     Dates: start: 201501, end: 201801
  6. LEPONEX [Interacting]
     Active Substance: CLOZAPINE
     Dosage: UNK
     Route: 048
  7. RISPERDAL [Interacting]
     Active Substance: RISPERIDONE
     Dosage: UNK
     Route: 048
  8. LEPONEX [Interacting]
     Active Substance: CLOZAPINE
     Indication: SCHIZOPHRENIA
     Dosage: 700 MG, QD
     Route: 048
     Dates: start: 201411

REACTIONS (3)
  - Acute psychosis [Unknown]
  - Hallucination, auditory [Recovered/Resolved]
  - Drug interaction [Unknown]

NARRATIVE: CASE EVENT DATE: 201801
